FAERS Safety Report 5040642-6 (Version None)
Quarter: 2006Q2

REPORT INFORMATION
  Report Type: 
  Country: None (occurrence: None)
  Receive Date: 20060630
  Receipt Date: 20060316
  Transmission Date: 20061013
  Serious: Yes (Disabling, Congenital Anomaly)
  Sender: FDA-Public Use
  Company Number: FR-MERCK-0603FRA00061

PATIENT
  Sex: Female
  Weight: 2 kg

DRUGS (3)
  1. SINGULAIR [Suspect]
     Indication: ASTHMA
     Dates: start: 20040415
  2. FLUTICASONE PROPIONATE AND SALMETEROL XINAFOATE [Suspect]
     Indication: ASTHMA
     Dates: start: 20040415
  3. FENOTEROL HYDROBROMIDE AND IPRATROPIUM BROMIDE [Suspect]
     Indication: ASTHMA
     Dates: start: 20040415

REACTIONS (4)
  - CONGENITAL HAND MALFORMATION [None]
  - DRUG EXPOSURE DURING PREGNANCY [None]
  - HAEMANGIOMA [None]
  - SMALL FOR DATES BABY [None]
